FAERS Safety Report 9418378 (Version 2)
Quarter: 2013Q3

REPORT INFORMATION
  Report Type: Spontaneous
  Country: FR (occurrence: FR)
  Receive Date: 20130725
  Receipt Date: 20130905
  Transmission Date: 20140515
  Serious: Yes (Hospitalization)
  Sender: FDA-Public Use
  Company Number: FR-ROCHE-1252787

PATIENT
  Age: 33 Year
  Sex: Female
  Weight: 73.5 kg

DRUGS (1)
  1. RIVOTRIL [Suspect]
     Indication: EPILEPSY
     Dosage: 2 MG
     Route: 048
     Dates: start: 20130701, end: 20130701

REACTIONS (2)
  - Depressed level of consciousness [Recovering/Resolving]
  - Somnolence [Recovering/Resolving]
